FAERS Safety Report 4846942-4 (Version None)
Quarter: 2005Q4

REPORT INFORMATION
  Report Type: 
  Country: None (occurrence: None)
  Receive Date: 20051202
  Receipt Date: 20051122
  Transmission Date: 20060501
  Serious: Yes (Hospitalization)
  Sender: FDA-Public Use
  Company Number: 6018739

PATIENT
  Age: 67 Year
  Sex: Female

DRUGS (2)
  1. LODOZ (FILM COATED TABLET) (HYDROCHLOROTHIAZIDE,  BISOPROLOL FUMARATE) [Suspect]
     Route: 048
     Dates: start: 20051007
  2. ATACAND [Suspect]
     Route: 048
     Dates: start: 20051007

REACTIONS (5)
  - DYSARTHRIA [None]
  - DYSPNOEA EXERTIONAL [None]
  - EYELID PTOSIS [None]
  - LUNG NEOPLASM [None]
  - MYASTHENIC SYNDROME [None]
